FAERS Safety Report 8975515 (Version 2)
Quarter: 2013Q1

REPORT INFORMATION
  Report Type: Spontaneous
  Country: US (occurrence: US)
  Receive Date: 20121219
  Receipt Date: 20130326
  Transmission Date: 20140127
  Serious: No
  Sender: FDA-Public Use
  Company Number: US-PFIZER INC-2012320096

PATIENT
  Age: 63 Year
  Sex: Female

DRUGS (9)
  1. CELEBREX [Suspect]
     Dosage: UNK
  2. VERAPAMIL HCL [Suspect]
     Dosage: UNK
  3. ZOLOFT [Suspect]
     Dosage: UNK
  4. ASPIRIN [Suspect]
     Dosage: UNK
  5. DESYREL [Suspect]
     Dosage: UNK
  6. LOTRISONE [Suspect]
     Dosage: UNK
  7. TRAZODONE [Suspect]
     Dosage: UNK
  8. ZOCOR [Suspect]
     Dosage: UNK
  9. CLOTRIMAZOLE/ BETAMETHASONE [Suspect]
     Dosage: UNK

REACTIONS (1)
  - Drug hypersensitivity [Unknown]
